FAERS Safety Report 11076677 (Version 1)
Quarter: 2015Q2

REPORT INFORMATION
  Report Type: Spontaneous
  Country: US (occurrence: US)
  Receive Date: 20150429
  Receipt Date: 20150429
  Transmission Date: 20150821
  Serious: Yes (Hospitalization, Other)
  Sender: FDA-Public Use
  Company Number: US-PFIZER INC-2015140369

PATIENT
  Age: 75 Year
  Sex: Female
  Weight: 73 kg

DRUGS (3)
  1. LYRICA [Suspect]
     Active Substance: PREGABALIN
     Indication: DIABETIC NEUROPATHY
     Dosage: 100 MG, 3X/DAY
  2. ESTROPIPATE. [Concomitant]
     Active Substance: ESTROPIPATE
     Indication: HORMONE REPLACEMENT THERAPY
     Dosage: 3 MG, 1X/DAY
  3. TESTOSTERONE. [Concomitant]
     Active Substance: TESTOSTERONE
     Indication: HORMONE REPLACEMENT THERAPY
     Dosage: 4 MG, DAILY
     Route: 061

REACTIONS (10)
  - Psychiatric symptom [Recovering/Resolving]
  - Depression [Recovering/Resolving]
  - Neck pain [Unknown]
  - Restless legs syndrome [Recovered/Resolved]
  - Suicide attempt [Recovered/Resolved]
  - Burning sensation [Recovered/Resolved]
  - Feeling hot [Not Recovered/Not Resolved]
  - Abnormal loss of weight [Unknown]
  - Pain in extremity [Recovered/Resolved]
  - Decreased appetite [Unknown]

NARRATIVE: CASE EVENT DATE: 201411
